FAERS Safety Report 9011610 (Version 7)
Quarter: 2014Q3

REPORT INFORMATION
  Report Type: Spontaneous
  Country: US (occurrence: US)
  Receive Date: 20130108
  Receipt Date: 20140721
  Transmission Date: 20150326
  Serious: Yes (Disabling)
  Sender: FDA-Public Use
  Company Number: US-009507513-1301USA002417

PATIENT
  Sex: Male
  Weight: 84.81 kg

DRUGS (2)
  1. FINASTERIDE. [Suspect]
     Active Substance: FINASTERIDE
     Indication: ANDROGENETIC ALOPECIA
     Dosage: 1.25 MG, QD
     Dates: start: 2008, end: 2009
  2. PROPECIA [Suspect]
     Active Substance: FINASTERIDE
     Indication: ANDROGENETIC ALOPECIA
     Dosage: 1 MG, UNK
     Route: 048
     Dates: start: 1998, end: 2008

REACTIONS (18)
  - Memory impairment [Unknown]
  - Inguinal hernia repair [Unknown]
  - Keratomileusis [Unknown]
  - Dysthymic disorder [Unknown]
  - Substance abuse [Unknown]
  - Anxiety [Unknown]
  - Testicular atrophy [Unknown]
  - Ejaculation disorder [Unknown]
  - Wrong technique in drug usage process [Unknown]
  - Cognitive disorder [Unknown]
  - Erectile dysfunction [Unknown]
  - Sexual dysfunction [Unknown]
  - HIV infection [Unknown]
  - Male orgasmic disorder [Unknown]
  - Back injury [Unknown]
  - Depression [Unknown]
  - Grief reaction [Unknown]
  - Urinary tract infection [Unknown]

NARRATIVE: CASE EVENT DATE: 2004
